FAERS Safety Report 8494999-4 (Version None)
Quarter: 2012Q3

REPORT INFORMATION
  Report Type: 
  Country: None (occurrence: None)
  Receive Date: 20120709
  Receipt Date: 20120625
  Transmission Date: 20120928
  Serious: Yes (Hospitalization, Other)
  Sender: FDA-Public Use
  Company Number: US-JNJFOC-20120601531

PATIENT
  Sex: Female
  Weight: 46.3 kg

DRUGS (10)
  1. PRILOSEC [Concomitant]
     Route: 065
  2. PENTASA [Concomitant]
     Route: 065
  3. REMICADE [Suspect]
     Dosage: 2ND LOADING DOSE
     Route: 042
     Dates: start: 20120614
  4. ENTOCORT EC [Concomitant]
     Route: 065
  5. INTUNIV [Concomitant]
     Route: 065
  6. REMICADE [Suspect]
     Indication: CROHN'S DISEASE
     Dosage: 1 ST LOADING DOSE
     Route: 042
     Dates: start: 20120517
  7. IMITREX [Concomitant]
     Indication: HEADACHE
     Route: 065
  8. FOLIC ACID [Concomitant]
     Route: 065
  9. YAZ [Concomitant]
     Indication: CONTRACEPTION
     Route: 065
  10. FLAGYL [Concomitant]
     Route: 065

REACTIONS (3)
  - INFECTIOUS MONONUCLEOSIS [None]
  - INFUSION RELATED REACTION [None]
  - CHEST DISCOMFORT [None]
